FAERS Safety Report 9149849 (Version 1)
Quarter: 2013Q1

REPORT INFORMATION
  Report Type: Spontaneous
  Country: US (occurrence: US)
  Receive Date: 20130308
  Receipt Date: 20130308
  Transmission Date: 20140127
  Serious: Yes (Hospitalization, Other)
  Sender: FDA-Public Use
  Company Number: US-PFIZER INC-2013080131

PATIENT
  Age: 61 Year
  Sex: Female
  Weight: 145 kg

DRUGS (3)
  1. DILANTIN-125 [Suspect]
     Indication: EAR INJURY
     Dosage: 100 MG, 4X/DAY
     Dates: start: 196101
  2. DILANTIN-125 [Suspect]
     Indication: NERVOUS SYSTEM DISORDER
  3. PRAVASTATIN [Concomitant]
     Indication: BLOOD CHOLESTEROL INCREASED
     Dosage: 20 MG, 1X/DAY

REACTIONS (2)
  - Bronchitis [Unknown]
  - Atrial fibrillation [Unknown]
